FAERS Safety Report 23801773 (Version 3)
Quarter: 2024Q2

REPORT INFORMATION
  Report Type: Spontaneous
  Country: PL (occurrence: PL)
  Receive Date: 20240501
  Receipt Date: 20240529
  Transmission Date: 20240716
  Serious: Yes (Other)
  Sender: FDA-Public Use
  Company Number: PL-ABBVIE-5736309

PATIENT
  Age: 56 Year
  Sex: Male
  Weight: 105 kg

DRUGS (24)
  1. VENETOCLAX [Suspect]
     Active Substance: VENETOCLAX
     Indication: Chronic lymphocytic leukaemia
     Route: 048
     Dates: start: 20240403
  2. VENETOCLAX [Suspect]
     Active Substance: VENETOCLAX
     Indication: Chronic lymphocytic leukaemia
     Dosage: 100 MILLIGRAM
     Route: 048
     Dates: start: 20230728
  3. PREDNISONE [Concomitant]
     Active Substance: PREDNISONE
     Indication: Thrombocytopenia
     Dates: start: 202306
  4. PREDNISONE [Concomitant]
     Active Substance: PREDNISONE
     Indication: Thrombocytopenia
     Dosage: 1 TABLET IN THE MORNING, 1/2 AT NOON WITH DOSE REDUCTION DEPENDING ON THE PLT LEVEL
     Dates: start: 20230819
  5. OMEPRAZOLE [Concomitant]
     Active Substance: DONEPEZIL HYDROCHLORIDE\OMEPRAZOLE\OMEPRAZOLE MAGNESIUM
     Indication: Prophylaxis against gastrointestinal ulcer
     Dates: start: 20230819
  6. SOLU-MEDROL [Concomitant]
     Active Substance: METHYLPREDNISOLONE SODIUM SUCCINATE
     Indication: Thrombocytopenia
     Dates: start: 202306
  7. URSOCAM [Concomitant]
     Indication: Liver disorder
     Dosage: 2 TABLET
     Route: 065
     Dates: start: 20230819
  8. DANAZOL [Concomitant]
     Active Substance: DANAZOL
     Indication: Thrombocytopenia
     Dates: start: 202403
  9. Immunoglobulin [Concomitant]
     Indication: Product used for unknown indication
     Dates: start: 20230710, end: 20230713
  10. Immunoglobulin [Concomitant]
     Indication: Product used for unknown indication
     Dosage: END DATE 2023
     Dates: start: 20230818
  11. Immunoglobulin [Concomitant]
     Indication: Product used for unknown indication
     Dates: start: 20230912, end: 20230913
  12. Immunoglobulin [Concomitant]
     Indication: Product used for unknown indication
     Dates: start: 20231207, end: 20231208
  13. Immunoglobulin [Concomitant]
     Indication: Product used for unknown indication
     Dates: start: 20240116, end: 20240117
  14. EPLENOCARD [Concomitant]
     Indication: Hypertension
     Route: 065
     Dates: start: 20230819
  15. ROSUVASTATIN [Concomitant]
     Active Substance: ROSUVASTATIN
     Indication: Hypercholesterolaemia
     Route: 065
     Dates: start: 20230819
  16. BISEPTOL [Concomitant]
     Active Substance: SULFAMETHOXAZOLE\TRIMETHOPRIM
     Indication: Antifungal prophylaxis
     Dosage: TIME INTERVAL: 0.33333333 WEEKS: 1 TABLET/ 3 TIMES A WEEK (MON/WEN/ FRID)
     Route: 065
     Dates: start: 20230819
  17. ACYCLOVIR [Concomitant]
     Active Substance: ACYCLOVIR
     Indication: Antiviral prophylaxis
     Route: 065
     Dates: start: 20230819
  18. POTASSIUM CHLORIDE [Concomitant]
     Active Substance: POTASSIUM CHLORIDE
     Indication: Hypokalaemia
     Dosage: EFFERVESCENT
     Dates: start: 20230819
  19. TRANEXAMIC ACID [Concomitant]
     Active Substance: TRANEXAMIC ACID
     Indication: Haemorrhage prophylaxis
     Route: 065
     Dates: start: 20230819
  20. PERINDOPRIL [Concomitant]
     Active Substance: PERINDOPRIL
     Indication: Hypertension
     Route: 065
     Dates: start: 20230819
  21. OBINUTUZUMAB [Concomitant]
     Active Substance: OBINUTUZUMAB
     Indication: Chronic lymphocytic leukaemia
     Route: 042
     Dates: start: 20230807
  22. OBINUTUZUMAB [Concomitant]
     Active Substance: OBINUTUZUMAB
     Indication: Chronic lymphocytic leukaemia
     Dosage: LAST ADMIN DATE-JUL 2023
     Route: 042
     Dates: start: 20230708
  23. OBINUTUZUMAB [Concomitant]
     Active Substance: OBINUTUZUMAB
     Indication: Chronic lymphocytic leukaemia
     Route: 042
     Dates: start: 20230707, end: 20230707
  24. OBINUTUZUMAB [Concomitant]
     Active Substance: OBINUTUZUMAB
     Indication: Chronic lymphocytic leukaemia
     Route: 042
     Dates: start: 20230714, end: 20230722

REACTIONS (3)
  - Immune thrombocytopenia [Recovering/Resolving]
  - Hepatic steatosis [Unknown]
  - Cholelithiasis [Unknown]

NARRATIVE: CASE EVENT DATE: 20240116
